FAERS Safety Report 4500312-7 (Version None)
Quarter: 2004Q4

REPORT INFORMATION
  Report Type: 
  Country: None (occurrence: None)
  Receive Date: 20041112
  Receipt Date: 20041007
  Transmission Date: 20050328
  Serious: Yes (Hospitalization)
  Sender: FDA-Public Use
  Company Number: AU-MERCK-0410AUS00111

PATIENT
  Age: 75 Year
  Sex: Male

DRUGS (4)
  1. VIOXX [Suspect]
     Route: 048
     Dates: start: 20010101, end: 20041001
  2. SIMVASTATIN [Concomitant]
     Route: 048
  3. IRBESARTAN [Concomitant]
     Route: 065
  4. CLOPIDOGREL BISULFATE [Concomitant]
     Route: 065

REACTIONS (1)
  - CEREBROVASCULAR ACCIDENT [None]
